FAERS Safety Report 5836314-8 (Version None)
Quarter: 2008Q3

REPORT INFORMATION
  Report Type: 
  Country: None (occurrence: None)
  Receive Date: 20080807
  Receipt Date: 20080730
  Transmission Date: 20090109
  Serious: Yes (Death, Other)
  Sender: FDA-Public Use
  Company Number: GB-RANBAXY-2008RR-16874

PATIENT

DRUGS (3)
  1. CODEINE SUL TAB [Suspect]
  2. AMITRIPTYLINE HCL [Suspect]
     Indication: DEPRESSION
  3. MORPHINE [Suspect]

REACTIONS (5)
  - DRUG INTERACTION [None]
  - HEPATIC ENCEPHALOPATHY [None]
  - INTENTIONAL DRUG MISUSE [None]
  - OVERDOSE [None]
  - SUDDEN DEATH [None]
